FAERS Safety Report 5414651-9 (Version None)
Quarter: 2007Q3

REPORT INFORMATION
  Report Type: 
  Country: None (occurrence: None)
  Receive Date: 20070731
  Receipt Date: 20070515
  Transmission Date: 20080115
  Serious: No
  Sender: FDA-Public Use
  Company Number: 2006PV025072

PATIENT
  Age: 74 Year
  Sex: Female
  Weight: 117.9 kg

DRUGS (10)
  1. EXENATIDE (EXENATIDE) PEN, DISPOSABLE [Suspect]
     Indication: TYPE 2 DIABETES MELLITUS
     Dosage: 5 UG, 2/D, SUBCUTANEOUS; 10 UG, 2/D, SUBCUTANEOUS
     Route: 058
     Dates: start: 20061107, end: 20061201
  2. METFORMIN HCL [Concomitant]
  3. FISH OIL [Concomitant]
  4. EVENING PRIMROSE OIL [Concomitant]
  5. SELENIUM SULFIDE [Concomitant]
  6. VITAMIN B-12 [Concomitant]
  7. CHROMIUM [Concomitant]
  8. IODINE [Concomitant]
  9. METFORMIN [Concomitant]
  10. EXENATIDE (EXENATIDE) PEN, DISPOSABLE [Suspect]

REACTIONS (7)
  - CONSTIPATION [None]
  - DECREASED APPETITE [None]
  - DIARRHOEA [None]
  - FREQUENT BOWEL MOVEMENTS [None]
  - NAUSEA [None]
  - WEIGHT [None]
  - WEIGHT DECREASED [None]
